FAERS Safety Report 24042193 (Version 5)
Quarter: 2024Q4

REPORT INFORMATION
  Report Type: Report from Study
  Country: US (occurrence: US)
  Receive Date: 20240702
  Receipt Date: 20241218
  Transmission Date: 20250115
  Serious: Yes (Death, Hospitalization)
  Sender: PFIZER
  Company Number: IN-PFIZER INC-202400204423

PATIENT
  Age: 76 Year
  Sex: Male
  Weight: 112 kg

DRUGS (17)
  1. METHOTREXATE SODIUM [Suspect]
     Active Substance: METHOTREXATE SODIUM
     Indication: Central nervous system lymphoma
     Dosage: 8 GRAMS/M2 ON DAYS 1 AND 15 OF EACH CYCLE IN DAY 2 CYCLE 2
     Route: 042
     Dates: start: 20240226, end: 20240325
  2. METHOTREXATE SODIUM [Suspect]
     Active Substance: METHOTREXATE SODIUM
     Dosage: 8 UNK
     Dates: start: 20240226, end: 20240401
  3. TIRABRUTINIB [Suspect]
     Active Substance: TIRABRUTINIB
     Indication: Central nervous system lymphoma
     Dosage: 480 MG, CYCLIC QD ON DAY 7CYCLE 2
     Dates: start: 20240226, end: 20240330
  4. TIRABRUTINIB [Suspect]
     Active Substance: TIRABRUTINIB
     Dosage: UNK
     Dates: start: 20240226, end: 20240401
  5. TEMOZOLOMIDE [Suspect]
     Active Substance: TEMOZOLOMIDE
     Dosage: 150 MG/M2/DAY ON DAY 7 THROUGH 11 (5 DOSE IN EACH CYCLE)
     Route: 048
     Dates: start: 20240303, end: 20240307
  6. RITUXIMAB [Concomitant]
     Active Substance: RITUXIMAB
     Indication: Central nervous system lymphoma
     Dosage: 375 MG/M2, WEEKLY X6 DOSES TOTAL ON DAY 4 CYCLE 2
     Route: 042
     Dates: start: 20240228, end: 20240327
  7. RITUXIMAB [Concomitant]
     Active Substance: RITUXIMAB
     Dosage: UNK
     Dates: start: 20240228, end: 20240401
  8. KEPPRA [Concomitant]
     Active Substance: LEVETIRACETAM
     Dosage: UNK
     Dates: start: 20240127, end: 20240331
  9. GUAIFENESIN [Concomitant]
     Active Substance: GUAIFENESIN
     Indication: Cough
     Dosage: 200 MG, AS NEEDED, EPHEDRINE HYDROCHLORIDE/GUAIFENESIN
     Dates: start: 20240303, end: 20240327
  10. AMANTADINE HYDROCHLORIDE [Concomitant]
     Active Substance: AMANTADINE HYDROCHLORIDE
     Indication: Memory impairment
     Dosage: 200 MG, DAILY
     Dates: start: 20240316, end: 20240325
  11. HEPARIN [Concomitant]
     Active Substance: HEPARIN SODIUM
     Indication: Thrombosis prophylaxis
     Dosage: 5000 IU (5000 UNITS, Q8HR)
     Dates: start: 20240317, end: 20240331
  12. LEUCOVORIN [Concomitant]
     Active Substance: LEUCOVORIN\LEUCOVORIN CALCIUM
     Indication: Renal disorder
     Dosage: 59.2 MG Q6HR
     Dates: start: 20240326, end: 20240331
  13. FUROSEMIDE [Concomitant]
     Active Substance: FUROSEMIDE
     Dosage: UNK
     Dates: start: 20240331, end: 20240331
  14. LORAZEPAM [Concomitant]
     Active Substance: LORAZEPAM
     Dosage: UNK
     Dates: start: 20240331, end: 20240331
  15. SCOPOLAMINE BUTYLBRMIDE [Concomitant]
     Dosage: UNK
     Dates: start: 20240331, end: 20240331
  16. MAGNESIUM SULFATE [Concomitant]
     Active Substance: MAGNESIUM SULFATE
  17. POTASSIUM CHLORIDE [Concomitant]
     Active Substance: POTASSIUM CHLORIDE

REACTIONS (2)
  - Seizure [Fatal]
  - Aspiration [Fatal]

NARRATIVE: CASE EVENT DATE: 20240330
